FAERS Safety Report 13718729 (Version 2)
Quarter: 2017Q3

REPORT INFORMATION
  Report Type: Spontaneous
  Country: BR (occurrence: BR)
  Receive Date: 20170705
  Receipt Date: 20170713
  Transmission Date: 20171127
  Serious: Yes (Other)
  Sender: FDA-Public Use
  Company Number: BR-PFIZER INC-2017288310

PATIENT
  Age: 67 Year
  Sex: Male

DRUGS (1)
  1. LOPID [Suspect]
     Active Substance: GEMFIBROZIL
     Indication: BLOOD TRIGLYCERIDES
     Dosage: 1 TABLET OF 600 MG IN THE PERIOD OF NIGHT, AT BEDTIME
     Route: 065

REACTIONS (2)
  - Product use issue [Recovered/Resolved]
  - Hypoacusis [Not Recovered/Not Resolved]
